FAERS Safety Report 16064774 (Version 2)
Quarter: 2019Q1

REPORT INFORMATION
  Report Type: Spontaneous
  Country: CA (occurrence: CA)
  Receive Date: 20190312
  Receipt Date: 20190319
  Transmission Date: 20190418
  Serious: Yes (Hospitalization)
  Sender: FDA-Public Use
  Company Number: CA-SAMSUNG BIOEPIS-SB-2019-05914

PATIENT
  Age: 68 Year
  Sex: Female

DRUGS (1)
  1. INFLIXIMAB [Suspect]
     Active Substance: INFLIXIMAB
     Indication: RHEUMATOID ARTHRITIS
     Route: 042

REACTIONS (12)
  - Nausea [Unknown]
  - Erythema [Unknown]
  - Hypertension [Unknown]
  - Infusion site extravasation [Unknown]
  - Pain in extremity [Unknown]
  - Vomiting [Unknown]
  - Gout [Unknown]
  - Dizziness [Unknown]
  - Intestinal mass [Unknown]
  - Peripheral swelling [Unknown]
  - Venous occlusion [Unknown]
  - Proctalgia [Unknown]
